FAERS Safety Report 10178222 (Version 2)
Quarter: 2014Q2

REPORT INFORMATION
  Report Type: Spontaneous
  Country: TW (occurrence: TW)
  Receive Date: 20140519
  Receipt Date: 20140627
  Transmission Date: 20141212
  Serious: Yes (Death, Hospitalization, Other)
  Sender: FDA-Public Use
  Company Number: TW-AMGEN INC.-TWNSP2014036636

PATIENT
  Age: 56 Year
  Sex: Male

DRUGS (1)
  1. ENBREL [Suspect]
     Indication: RHEUMATOID ARTHRITIS
     Dosage: 25 MG, 2X/WEEK
     Route: 058
     Dates: start: 20120214

REACTIONS (6)
  - Death [Fatal]
  - Dyspnoea [Unknown]
  - Pleural effusion [Recovered/Resolved]
  - Wound [Recovering/Resolving]
  - Influenza [Recovered/Resolved]
  - Cellulitis [Recovering/Resolving]
